FAERS Safety Report 11165523 (Version 1)
Quarter: 2015Q2

REPORT INFORMATION
  Report Type: Spontaneous
  Country: CA (occurrence: CA)
  Receive Date: 20150604
  Receipt Date: 20150604
  Transmission Date: 20150821
  Serious: Yes (Death)
  Sender: FDA-Public Use
  Company Number: CA-PURDUE PHARMA-CAN-2015-0005817

PATIENT
  Age: 85 Year
  Sex: Male

DRUGS (1)
  1. DILAUDID [Suspect]
     Active Substance: HYDROMORPHONE HYDROCHLORIDE
     Indication: PAIN
     Dosage: 1 TO 2 MG, Q3H
     Route: 042
     Dates: start: 20100608, end: 20100609

REACTIONS (4)
  - Accidental overdose [Fatal]
  - Off label use [Fatal]
  - Respiratory depression [Fatal]
  - Pneumonia [Fatal]

NARRATIVE: CASE EVENT DATE: 20100609
